FAERS Safety Report 9418146 (Version 1)
Quarter: 2013Q3

REPORT INFORMATION
  Report Type: Report from Study
  Country: ES (occurrence: ES)
  Receive Date: 20130724
  Receipt Date: 20130724
  Transmission Date: 20140515
  Serious: Yes (Hospitalization)
  Sender: FDA-Public Use
  Company Number: ES-CELGENEUS-144-50794-13071313

PATIENT
  Sex: Male

DRUGS (2)
  1. VIDAZA [Suspect]
     Indication: MYELODYSPLASTIC SYNDROME
     Dosage: 80 MILLIGRAM/SQ. METER
     Route: 065
     Dates: start: 20121113, end: 20130410
  2. RED BLOOD CELLS [Concomitant]
     Indication: PRODUCT USED FOR UNKNOWN INDICATION
     Route: 041

REACTIONS (3)
  - Drug intolerance [Unknown]
  - Toxicity to various agents [Unknown]
  - Infection [Unknown]
